FAERS Safety Report 6610061-7 (Version None)
Quarter: 2010Q1

REPORT INFORMATION
  Report Type: 
  Country: None (occurrence: None)
  Receive Date: 20100302
  Receipt Date: 20100216
  Transmission Date: 20100710
  Serious: Yes (Hospitalization)
  Sender: FDA-Public Use
  Company Number: FR-CELGENEUS-056-C5013-09100613

PATIENT
  Sex: Male
  Weight: 68 kg

DRUGS (15)
  1. CC-5013 [Suspect]
     Indication: NON-HODGKIN'S LYMPHOMA
     Route: 048
     Dates: start: 20090202, end: 20091005
  2. MOPRAL [Concomitant]
     Route: 048
  3. GAVISCON [Concomitant]
     Route: 048
  4. CORTANCYL [Concomitant]
     Route: 065
     Dates: start: 20071201
  5. PRIMPERAN [Concomitant]
     Indication: NAUSEA
     Route: 065
  6. PRIMPERAN [Concomitant]
     Indication: VOMITING
  7. LASILIX [Concomitant]
     Indication: HYPERTENSION
     Route: 048
  8. APROVEL [Concomitant]
     Indication: HYPERTENSION
     Route: 048
  9. HUMALOG [Concomitant]
     Route: 058
  10. LANTUS [Concomitant]
     Route: 058
  11. NEXIUM [Concomitant]
     Route: 048
  12. BRICANYL [Concomitant]
     Indication: ASTHMA
     Route: 055
  13. OROKEN [Concomitant]
  14. TOPLEXIL [Concomitant]
     Indication: COUGH
     Route: 048
  15. EFFERALGAN [Concomitant]
     Indication: PAIN
     Route: 048

REACTIONS (4)
  - NEUTROPENIA [None]
  - PNEUMOCOCCAL SEPSIS [None]
  - PNEUMONIA [None]
  - SEPTIC SHOCK [None]
